FAERS Safety Report 7043954-X (Version None)
Quarter: 2010Q4

REPORT INFORMATION
  Report Type: 
  Country: None (occurrence: None)
  Receive Date: 20101008
  Receipt Date: 20101008
  Transmission Date: 20110411
  Serious: Yes (Hospitalization)
  Sender: FDA-Public Use
  Company Number: None

PATIENT
  Age: 19 Year
  Sex: Male
  Weight: 58.9676 kg

DRUGS (4)
  1. VERSED [Suspect]
     Indication: COLONOSCOPY
     Dosage: IV DRIP
     Route: 041
     Dates: start: 20100806, end: 20100806
  2. VERSED [Suspect]
     Indication: SEDATION
     Dosage: IV DRIP
     Route: 041
     Dates: start: 20100806, end: 20100806
  3. FENTANYL [Suspect]
     Indication: COLONOSCOPY
     Dosage: IV DRIP
     Route: 041
     Dates: start: 20100806, end: 20100806
  4. FENTANYL [Suspect]
     Indication: SEDATION
     Dosage: IV DRIP
     Route: 041
     Dates: start: 20100806, end: 20100806

REACTIONS (9)
  - ANXIETY [None]
  - CRYING [None]
  - DELAYED RECOVERY FROM ANAESTHESIA [None]
  - HALLUCINATIONS, MIXED [None]
  - HYPERSOMNIA [None]
  - PARANOIA [None]
  - PSYCHOTIC DISORDER [None]
  - TREMOR [None]
  - UNEVALUABLE EVENT [None]
